FAERS Safety Report 11984027 (Version 1)
Quarter: 2016Q1

REPORT INFORMATION
  Report Type: Spontaneous
  Country: US (occurrence: US)
  Receive Date: 20160201
  Receipt Date: 20160201
  Transmission Date: 20160526
  Serious: No
  Sender: FDA-Public Use
  Company Number: US-DSJP-DSU-2015-135797

PATIENT
  Age: 86 Year
  Sex: Female

DRUGS (4)
  1. SAVAYSA [Suspect]
     Active Substance: EDOXABAN TOSYLATE
     Dosage: 30 MG, QD
     Route: 048
     Dates: start: 2015, end: 2015
  2. COUMADIN [Concomitant]
     Active Substance: WARFARIN SODIUM
     Indication: ATRIAL FIBRILLATION
     Dosage: UNK
     Dates: end: 201506
  3. SAVAYSA [Suspect]
     Active Substance: EDOXABAN TOSYLATE
     Dosage: 30 MG, QOD
     Route: 048
  4. SAVAYSA [Suspect]
     Active Substance: EDOXABAN TOSYLATE
     Indication: ATRIAL FIBRILLATION
     Dosage: 30 MG, QD
     Route: 048
     Dates: start: 20150615, end: 2015

REACTIONS (2)
  - Drug prescribing error [Unknown]
  - Haemorrhage urinary tract [Unknown]

NARRATIVE: CASE EVENT DATE: 2015
